FAERS Safety Report 5236307-8 (Version None)
Quarter: 2007Q1

REPORT INFORMATION
  Report Type: 
  Country: None (occurrence: None)
  Receive Date: 20070212
  Receipt Date: 20070131
  Transmission Date: 20070707
  Serious: Yes (Other)
  Sender: FDA-Public Use
  Company Number: US-PFIZER INC-2007008521

PATIENT
  Sex: Female

DRUGS (10)
  1. CHANTIX [Suspect]
     Indication: SMOKING CESSATION THERAPY
     Dates: start: 20060101, end: 20070131
  2. PREMARIN [Concomitant]
  3. AVAPRO [Concomitant]
  4. TIAZAC [Concomitant]
  5. DETROL LA [Concomitant]
  6. CYMBALTA [Concomitant]
  7. DEPAKOTE [Concomitant]
  8. DILAUDID [Concomitant]
  9. CAFERGOT [Concomitant]
  10. VALIUM [Concomitant]

REACTIONS (8)
  - ABNORMAL DREAMS [None]
  - COLD SWEAT [None]
  - HEADACHE [None]
  - INFLUENZA [None]
  - INSOMNIA [None]
  - NAUSEA [None]
  - NIGHTMARE [None]
  - PLASTIC SURGERY [None]
